FAERS Safety Report 15744872 (Version 1)
Quarter: 2018Q4

REPORT INFORMATION
  Report Type: Spontaneous
  Country: US (occurrence: US)
  Receive Date: 20181220
  Receipt Date: 20181220
  Transmission Date: 20190205
  Serious: No
  Sender: FDA-Public Use
  Company Number: US-ASTRAZENECA-2018SF59844

PATIENT
  Sex: Male
  Weight: 79.8 kg

DRUGS (3)
  1. COUMADIN [Concomitant]
     Active Substance: WARFARIN SODIUM
     Dosage: UNKNOWN
     Route: 065
  2. NEBULIZER AND VENTOLIN [Concomitant]
     Dosage: UNKNOWN
     Route: 065
  3. SYMBICORT [Suspect]
     Active Substance: BUDESONIDE\FORMOTEROL FUMARATE DIHYDRATE
     Indication: CHRONIC OBSTRUCTIVE PULMONARY DISEASE
     Dosage: TWO PUFFS TWICE DAILY
     Route: 055

REACTIONS (9)
  - Swollen tongue [Unknown]
  - Hypersensitivity [Unknown]
  - Product dose omission [Unknown]
  - Body height decreased [Unknown]
  - Circumstance or information capable of leading to medication error [Unknown]
  - Lip swelling [Unknown]
  - Chronic obstructive pulmonary disease [Unknown]
  - Device failure [Unknown]
  - Intentional product misuse [Not Recovered/Not Resolved]
